FAERS Safety Report 15299929 (Version 1)
Quarter: 2018Q3

REPORT INFORMATION
  Report Type: Spontaneous
  Country: US (occurrence: US)
  Receive Date: 20180808
  Receipt Date: 20180808
  Transmission Date: 20181010
  Serious: Yes (Hospitalization)
  Sender: FDA-Public Use
  Company Number: None

PATIENT
  Age: 43 Year
  Sex: Female

DRUGS (1)
  1. HUMIRA [Suspect]
     Active Substance: ADALIMUMAB
     Indication: CROHN^S DISEASE
     Route: 058
     Dates: start: 20180406

REACTIONS (5)
  - Diarrhoea [None]
  - Blood calcium decreased [None]
  - Inappropriate schedule of drug administration [None]
  - Pulmonary embolism [None]
  - Blood magnesium decreased [None]

NARRATIVE: CASE EVENT DATE: 20180721
